FAERS Safety Report 17489035 (Version 1)
Quarter: 2020Q1

REPORT INFORMATION
  Report Type: Spontaneous
  Country: US (occurrence: US)
  Receive Date: 20200303
  Receipt Date: 20200303
  Transmission Date: 20200409
  Serious: No
  Sender: FDA-Public Use
  Company Number: US-PERRIGO-19US002988

PATIENT
  Age: 48 Year
  Sex: Male
  Weight: 102.04 kg

DRUGS (1)
  1. NAPROXEN SODIUM. [Suspect]
     Active Substance: NAPROXEN SODIUM
     Indication: NECK PAIN
     Dosage: 220 MG, PRN
     Route: 048
     Dates: start: 201902, end: 20190226

REACTIONS (3)
  - Hyperaesthesia teeth [Recovered/Resolved]
  - Oral discomfort [Recovered/Resolved]
  - Dysgeusia [Recovered/Resolved]

NARRATIVE: CASE EVENT DATE: 201902
